FAERS Safety Report 16304428 (Version 3)
Quarter: 2020Q4

REPORT INFORMATION
  Report Type: Spontaneous
  Country: None (occurrence: US)
  Receive Date: 20190513
  Receipt Date: 20201030
  Transmission Date: 20210113
  Serious: Yes (Hospitalization, Other)
  Sender: FDA-Public Use
  Company Number: US-SA-2019SA127057

PATIENT

DRUGS (6)
  1. DUPILUMAB [Suspect]
     Active Substance: DUPILUMAB
     Indication: DERMATITIS ATOPIC
     Dosage: 300 MG, QW
     Dates: start: 201706
  2. PREDNISONE. [Suspect]
     Active Substance: PREDNISONE
     Indication: DERMATITIS ATOPIC
     Dosage: TAPER DOSAGE
     Dates: start: 2017
  3. DOXYCYCLINE SALT NOT SPECIFIED [Suspect]
     Active Substance: DOXYCYCLINE
     Indication: BACTERIAL INFECTION
     Dosage: 100 MG, BID
     Dates: start: 2017
  4. DUPILUMAB [Suspect]
     Active Substance: DUPILUMAB
     Dosage: 300 MG, QOW
     Dates: start: 201704
  5. CYCLOSPORIN [Suspect]
     Active Substance: CYCLOSPORINE
     Indication: DERMATITIS ATOPIC
     Dosage: 300 MG, QD
     Dates: start: 2017
  6. DUPILUMAB [Suspect]
     Active Substance: DUPILUMAB
     Dosage: 300 MG, QOW
     Dates: start: 2017

REACTIONS (10)
  - Drug ineffective [Not Recovered/Not Resolved]
  - Nausea [Recovered/Resolved]
  - Pancreatitis acute [Recovered/Resolved]
  - Abdominal pain [Recovered/Resolved]
  - Dermatitis atopic [Not Recovered/Not Resolved]
  - Diarrhoea [Recovered/Resolved]
  - Product use issue [Unknown]
  - Vomiting [Recovered/Resolved]
  - Bacterial infection [Unknown]
  - Peripancreatic fluid collection [Recovered/Resolved]

NARRATIVE: CASE EVENT DATE: 2017
